FAERS Safety Report 6617880-1 (Version None)
Quarter: 2010Q1

REPORT INFORMATION
  Report Type: 
  Country: None (occurrence: None)
  Receive Date: 20100308
  Receipt Date: 20100223
  Transmission Date: 20100710
  Serious: Yes (Other)
  Sender: FDA-Public Use
  Company Number: BR-ELI_LILLY_AND_COMPANY-BR201002006507

PATIENT
  Age: 59 Year
  Sex: Female

DRUGS (8)
  1. CYMBALTA [Suspect]
     Dosage: UNK, DAILY (1/D)
     Route: 065
     Dates: start: 20100120, end: 20100101
  2. LOSARTAN POTASSIUM [Concomitant]
     Dosage: UNK, UNKNOWN
     Route: 065
  3. PROPRANOLOL [Concomitant]
     Dosage: UNK, UNKNOWN
     Route: 065
  4. AMLODIPINA /00972402/ [Concomitant]
     Dosage: UNK, UNKNOWN
     Route: 065
  5. CLORANA [Concomitant]
     Dosage: UNK, UNKNOWN
     Route: 065
  6. BUSCOPAN [Concomitant]
     Dosage: UNK, UNKNOWN
     Route: 065
  7. NIMESULIDA [Concomitant]
     Dosage: UNK, UNKNOWN
     Route: 065
  8. CELEBRA [Concomitant]
     Dosage: UNK, UNKNOWN
     Route: 065

REACTIONS (5)
  - DYSPHONIA [None]
  - DYSPNOEA [None]
  - GENERALISED ERYTHEMA [None]
  - GENERALISED OEDEMA [None]
  - MYDRIASIS [None]
